FAERS Safety Report 9186676 (Version 1)
Quarter: 2013Q1

REPORT INFORMATION
  Report Type: Spontaneous
  Country: US (occurrence: US)
  Receive Date: 20130325
  Receipt Date: 20130325
  Transmission Date: 20140127
  Serious: No
  Sender: FDA-Public Use
  Company Number: US-GLAXOSMITHKLINE-A0987703A

PATIENT
  Age: 72 Year
  Sex: Female

DRUGS (7)
  1. RYTHMOL SR [Suspect]
     Indication: ARRHYTHMIA
     Dosage: 225MG TWICE PER DAY
     Route: 048
     Dates: start: 20120726
  2. CARDIZEM [Concomitant]
  3. LISINOPRIL [Concomitant]
  4. POTASSIUM CHLORIDE [Concomitant]
  5. VITAMINS [Concomitant]
  6. ASPIRIN [Concomitant]
  7. SYNTHROID [Concomitant]

REACTIONS (4)
  - Throat tightness [Not Recovered/Not Resolved]
  - Dysphagia [Unknown]
  - Vomiting [Unknown]
  - Increased upper airway secretion [Unknown]
